FAERS Safety Report 21441848 (Version 2)
Quarter: 2022Q4

REPORT INFORMATION
  Report Type: Report from Study
  Country: CH (occurrence: CH)
  Receive Date: 20221011
  Receipt Date: 20221017
  Transmission Date: 20230112
  Serious: Yes (Hospitalization)
  Sender: FDA-Public Use
  Company Number: CH-ABBVIE-4148019

PATIENT
  Sex: Female

DRUGS (5)
  1. CARBIDOPA\LEVODOPA [Suspect]
     Active Substance: CARBIDOPA\LEVODOPA
     Indication: Parkinson^s disease
     Dosage: MD: 6 ML, CRD 3.3 ML/H, ED 1.5 ML?16TH THERAPY
     Route: 050
     Dates: start: 20220728, end: 20220828
  2. CARBIDOPA\LEVODOPA [Suspect]
     Active Substance: CARBIDOPA\LEVODOPA
     Dosage: MD: 6 ML, CRD 3 ML/H, ED 1.5 ML?16TH THERAPY
     Route: 050
     Dates: start: 20220428, end: 20220630
  3. CARBIDOPA\LEVODOPA [Suspect]
     Active Substance: CARBIDOPA\LEVODOPA
     Dosage: MD 3 ML, CRD 3.6 ML/H, ED 1.5 ML?16TH THERAPY
     Route: 050
     Dates: start: 20220425, end: 20220428
  4. CARBIDOPA\LEVODOPA [Suspect]
     Active Substance: CARBIDOPA\LEVODOPA
     Dosage: MD: 6 ML, CRD 3.1 ML/H, ED 1.5 ML?16TH THERAPY
     Route: 050
     Dates: start: 20220630, end: 20220728
  5. CARBIDOPA\LEVODOPA [Suspect]
     Active Substance: CARBIDOPA\LEVODOPA
     Dosage: MD: 6 ML, CRD 3.5 ML/H, ED 1.5 ML?16TH THERAPY
     Route: 050
     Dates: start: 20220928

REACTIONS (5)
  - Unresponsive to stimuli [Unknown]
  - Fall [Unknown]
  - Orthostatic intolerance [Unknown]
  - Balance disorder [Unknown]
  - Epilepsy [Unknown]

NARRATIVE: CASE EVENT DATE: 20220101
